FAERS Safety Report 18830892 (Version 1)
Quarter: 2021Q1

REPORT INFORMATION
  Report Type: Other
  Country: GB (occurrence: GB)
  Receive Date: 20210203
  Receipt Date: 20210203
  Transmission Date: 20210419
  Serious: Yes (Life-Threatening, Hospitalization)
  Sender: FDA-Public Use
  Company Number: GB-CELLTRION INC.-2021GB001049

PATIENT

DRUGS (6)
  1. CYCLOPHOSPHAMIDE. [Concomitant]
     Active Substance: CYCLOPHOSPHAMIDE
  2. TRASTUZUMAB (UNKNOWN) [Suspect]
     Active Substance: TRASTUZUMAB
     Indication: BREAST CANCER FEMALE
     Dosage: 504 MG (DOSE FORM: 293)
     Route: 042
     Dates: start: 20191011, end: 20191011
  3. FLUOROURACIL. [Concomitant]
     Active Substance: FLUOROURACIL
  4. DOCETAXEL. [Concomitant]
     Active Substance: DOCETAXEL
  5. EPIRUBICIN HYDROCHLORIDE. [Concomitant]
     Active Substance: EPIRUBICIN HYDROCHLORIDE
  6. PERTUZUMAB. [Concomitant]
     Active Substance: PERTUZUMAB

REACTIONS (4)
  - Petechiae [Unknown]
  - Overdose [Unknown]
  - Immune thrombocytopenia [Recovered/Resolved]
  - Ecchymosis [Unknown]

NARRATIVE: CASE EVENT DATE: 20191015
